FAERS Safety Report 15178923 (Version 2)
Quarter: 2018Q3

REPORT INFORMATION
  Report Type: Spontaneous
  Country: JP (occurrence: JP)
  Receive Date: 20180723
  Receipt Date: 20180801
  Transmission Date: 20181010
  Serious: Yes (Death, Other)
  Sender: FDA-Public Use
  Company Number: JP-TAKEDA-2018TJP018931AA

PATIENT
  Age: 74 Year
  Sex: Female

DRUGS (1)
  1. INISYNC COMBINATION TABLETS [Suspect]
     Active Substance: ALOGLIPTIN BENZOATE\METFORMIN HYDROCHLORIDE
     Indication: DIABETES MELLITUS
     Dosage: UNK
     Route: 048
     Dates: start: 20180306, end: 201806

REACTIONS (1)
  - Gastric cancer [Fatal]

NARRATIVE: CASE EVENT DATE: 20180714
